FAERS Safety Report 13083497 (Version 2)
Quarter: 2017Q1

REPORT INFORMATION
  Report Type: Spontaneous
  Country: US (occurrence: US)
  Receive Date: 20170104
  Receipt Date: 20170303
  Transmission Date: 20170428
  Serious: No
  Sender: FDA-Public Use
  Company Number: US-ASTRAZENECA-2016SF37799

PATIENT
  Age: 78 Year
  Sex: Female
  Weight: 54.4 kg

DRUGS (1)
  1. TUDORZA PRESSAIR [Suspect]
     Active Substance: ACLIDINIUM BROMIDE
     Indication: LUNG DISORDER
     Dosage: 400MCG, ONE PUFF TWICE DAILY
     Route: 055
     Dates: start: 2015

REACTIONS (6)
  - Dyspnoea [Unknown]
  - Product use issue [Unknown]
  - Off label use [Unknown]
  - Respiration abnormal [Unknown]
  - Device malfunction [Unknown]
  - Drug dose omission [Unknown]

NARRATIVE: CASE EVENT DATE: 2015
